FAERS Safety Report 5265879-2 (Version None)
Quarter: 2007Q1

REPORT INFORMATION
  Report Type: 
  Country: None (occurrence: None)
  Receive Date: 20070312
  Receipt Date: 20070312
  Transmission Date: 20070707
  Serious: Yes (Other)
  Sender: FDA-Public Use
  Company Number: None

PATIENT
  Sex: Male
  Weight: 72.5755 kg

DRUGS (1)
  1. PREDNISONE [Suspect]
     Indication: ARTHRITIS
     Dosage: CANT REMEMBER SAME PO
     Route: 048

REACTIONS (3)
  - ALOPECIA [None]
  - ERECTILE DYSFUNCTION [None]
  - WEIGHT INCREASED [None]
